FAERS Safety Report 20381043 (Version 1)
Quarter: 2022Q1

REPORT INFORMATION
  Report Type: Spontaneous
  Country: US (occurrence: US)
  Receive Date: 20220127
  Receipt Date: 20220127
  Transmission Date: 20220424
  Serious: No
  Sender: FDA-Public Use
  Company Number: US-PERRIGO-20US017627

PATIENT
  Sex: Female

DRUGS (1)
  1. OMEPRAZOLE [Suspect]
     Active Substance: OMEPRAZOLE
     Indication: Product used for unknown indication
     Dosage: UNKNOWN, UNKNOWN
     Route: 050
     Dates: start: 202011, end: 20201203

REACTIONS (2)
  - Swollen tongue [Unknown]
  - Oral disorder [Unknown]

NARRATIVE: CASE EVENT DATE: 20200101
